FAERS Safety Report 8603887 (Version 4)
Quarter: 2013Q1

REPORT INFORMATION
  Report Type: Spontaneous
  Country: CA (occurrence: CA)
  Receive Date: 20120607
  Receipt Date: 20130222
  Transmission Date: 20140127
  Serious: Yes (Other)
  Sender: FDA-Public Use
  Company Number: CA-ABBOTT-12P-028-0943522-00

PATIENT
  Age: 10 Year
  Sex: Female
  Weight: 11.4 kg

DRUGS (5)
  1. VALPROIC ACID [Suspect]
     Indication: CONVULSION
     Dosage: 125 MD A.M, 62.5 MG P.M, 125 MG NOCTE
  2. TOPIRAMATE [Suspect]
     Indication: CONVULSION
     Dosage: 25 MG A.M, 12.5 MG P.M, 25 MG NOCTE
  3. CARNITINE [Concomitant]
     Indication: PRODUCT USED FOR UNKNOWN INDICATION
  4. LANSOPRAZOLE [Concomitant]
     Indication: PRODUCT USED FOR UNKNOWN INDICATION
  5. CALCIUM CARBONATE [Concomitant]
     Indication: PRODUCT USED FOR UNKNOWN INDICATION

REACTIONS (9)
  - Fanconi syndrome [Recovered/Resolved]
  - Hypophosphataemic rickets [Recovered/Resolved]
  - Nephrocalcinosis [Recovered/Resolved]
  - Metabolic acidosis [Recovered/Resolved]
  - Blood alkaline phosphatase increased [Recovered/Resolved]
  - Renal tubular acidosis [Recovered/Resolved]
  - Proteinuria [Recovered/Resolved]
  - Glycosuria [Recovered/Resolved]
  - Urine calcium/creatinine ratio increased [Recovered/Resolved]
